FAERS Safety Report 9868126 (Version 2)
Quarter: 2014Q3

REPORT INFORMATION
  Report Type: Spontaneous
  Country: US (occurrence: US)
  Receive Date: 20140204
  Receipt Date: 20140710
  Transmission Date: 20150326
  Serious: Yes (Hospitalization, Other)
  Sender: FDA-Public Use
  Company Number: US-009507513-1402USA001291

PATIENT
  Sex: Female
  Weight: 89.8 kg

DRUGS (1)
  1. NUVARING [Suspect]
     Active Substance: ETHINYL ESTRADIOL\ETONOGESTREL
     Dosage: UNK
     Route: 067
     Dates: end: 20120927

REACTIONS (6)
  - Papilloedema [Recovered/Resolved]
  - Superior sagittal sinus thrombosis [Recovered/Resolved]
  - Cerebral infarction [Recovered/Resolved]
  - Off label use [Unknown]
  - Migraine [Unknown]
  - Convulsion [Unknown]

NARRATIVE: CASE EVENT DATE: 20120918
